FAERS Safety Report 6981082-X (Version None)
Quarter: 2010Q3

REPORT INFORMATION
  Report Type: 
  Country: None (occurrence: None)
  Receive Date: 20100914
  Receipt Date: 20100824
  Transmission Date: 20110219
  Serious: Yes (Hospitalization)
  Sender: FDA-Public Use
  Company Number: JP-JNJCH-2010020653

PATIENT
  Age: 83 Year
  Sex: Female

DRUGS (1)
  1. ZYRTEC [Suspect]
     Indication: SEASONAL ALLERGY
     Dosage: TEXT:10 MG QD
     Route: 048
     Dates: start: 20000101, end: 20090101

REACTIONS (4)
  - BLOOD PRESSURE INCREASED [None]
  - HAEMATEMESIS [None]
  - LOSS OF CONSCIOUSNESS [None]
  - NAUSEA [None]
